FAERS Safety Report 4920047-6 (Version None)
Quarter: 2006Q1

REPORT INFORMATION
  Report Type: 
  Country: None (occurrence: None)
  Receive Date: 20060216
  Receipt Date: 20060207
  Transmission Date: 20060701
  Serious: Yes (Hospitalization)
  Sender: FDA-Public Use
  Company Number: 2006-00457

PATIENT
  Age: 4 Week
  Sex: Male
  Weight: 2.8 kg

DRUGS (5)
  1. CLONIDINE [Suspect]
     Indication: PERIOPERATIVE ANALGESIA
     Dosage: 1 UG/KG, SINGLE CAUSAL BLOCK, OTHER
     Route: 050
  2. ROPIVACAINE (ROPIVACAINE) [Suspect]
     Indication: PERIOPERATIVE ANALGESIA
     Dosage: 2.8 ML (1ML/KG), CAUDAL BLOCK X 1, OTHER
     Route: 050
  3. ISOFLURANE (SEVOFLURANE) [Suspect]
     Indication: ANAESTHESIA
     Dosage: SINGLE INHALATION, RESPIRATORY
     Route: 055
  4. OXYGEN (OXYGEN) [Concomitant]
  5. DEXTROSE 5% AND SODIUM CHLORIDE 0.45% IN PLASTIC CONTAINER [Concomitant]

REACTIONS (4)
  - ANAESTHETIC COMPLICATION NEONATAL [None]
  - BRADYCARDIA NEONATAL [None]
  - INFANTILE APNOEIC ATTACK [None]
  - NEONATAL RESPIRATORY DEPRESSION [None]
